FAERS Safety Report 10516876 (Version 1)
Quarter: 2014Q4

REPORT INFORMATION
  Report Type: Spontaneous
  Country: US (occurrence: None)
  Receive Date: 20141003
  Receipt Date: 20141003
  Transmission Date: 20150528
  Serious: Yes (Other)
  Sender: FDA-Public Use
  Company Number: 1407502

PATIENT
  Age: 52 Year
  Sex: Male
  Weight: 103.87 kg

DRUGS (2)
  1. PEGASYS [Suspect]
     Active Substance: PEGINTERFERON ALFA-2A
     Indication: CHRONIC HEPATITIS C
     Dosage: MOST RECENT ( THIRD) DOSE PRIOR TO SAE: 15/MAY/2014 ( 180 UG, 1 IN 1 WK), SUBCUTANEOUS
     Route: 058
     Dates: start: 20140501
  2. RIBAVIRIN. [Suspect]
     Active Substance: RIBAVIRIN
     Indication: PRODUCT USED FOR UNKNOWN INDICATION

REACTIONS (2)
  - Diarrhoea [None]
  - Migraine [None]

NARRATIVE: CASE EVENT DATE: 20140517
